FAERS Safety Report 8990623 (Version 1)
Quarter: 2012Q4

REPORT INFORMATION
  Report Type: Report from Study
  Country: CA (occurrence: CA)
  Receive Date: 20121228
  Receipt Date: 20121228
  Transmission Date: 20130627
  Serious: Yes (Hospitalization, Other)
  Sender: FDA-Public Use
  Company Number: CA-ROCHE-1170906

PATIENT
  Sex: Male
  Weight: 109.12 kg

DRUGS (13)
  1. OMALIZUMAB [Suspect]
     Indication: ASTHMA
     Route: 058
     Dates: start: 20080205
  2. OMALIZUMAB [Suspect]
     Route: 058
     Dates: start: 20091027
  3. OMALIZUMAB [Suspect]
     Route: 058
     Dates: start: 20091124
  4. OMALIZUMAB [Suspect]
     Route: 058
     Dates: start: 20091208
  5. OMALIZUMAB [Suspect]
     Route: 065
     Dates: start: 20091222
  6. OMALIZUMAB [Suspect]
     Route: 065
     Dates: start: 20100302
  7. OMALIZUMAB [Suspect]
     Route: 058
     Dates: start: 20100330
  8. VENTOLIN [Concomitant]
     Indication: PRODUCT USED FOR UNKNOWN INDICATION
     Dosage: UNK
     Route: 065
  9. SPIRIVA [Concomitant]
     Indication: PRODUCT USED FOR UNKNOWN INDICATION
     Dosage: UNK
     Route: 065
  10. ALVESCO [Concomitant]
     Indication: PRODUCT USED FOR UNKNOWN INDICATION
     Dosage: UNK
     Route: 065
  11. SYMBICORT [Concomitant]
     Indication: PRODUCT USED FOR UNKNOWN INDICATION
     Dosage: UNK
     Route: 065
  12. SINGULAIR [Concomitant]
     Indication: PRODUCT USED FOR UNKNOWN INDICATION
     Dosage: UNK
     Route: 065
  13. PREDNISONE [Concomitant]
     Indication: INFLUENZA
     Route: 065

REACTIONS (18)
  - Blood pressure decreased [Unknown]
  - Pulmonary mass [Unknown]
  - Body temperature decreased [Unknown]
  - Nasopharyngitis [Unknown]
  - Influenza [Unknown]
  - Respiratory disorder [Unknown]
  - Oropharyngeal pain [Unknown]
  - Fatigue [Unknown]
  - Arthritis [Unknown]
  - Poor quality sleep [Unknown]
  - Asthenia [Unknown]
  - Occupational exposure to dust [Unknown]
  - Joint injury [Unknown]
  - Tendonitis [Unknown]
  - Anxiety [Unknown]
  - Nervousness [Unknown]
  - Hypoaesthesia [Unknown]
  - Lung disorder [Unknown]
